FAERS Safety Report 23425496 (Version 2)
Quarter: 2024Q1

REPORT INFORMATION
  Report Type: Spontaneous
  Country: BR (occurrence: BR)
  Receive Date: 20240122
  Receipt Date: 20240131
  Transmission Date: 20240410
  Serious: Yes (Hospitalization, Other)
  Sender: FDA-Public Use
  Company Number: BR-BoehringerIngelheim-2024-BI-002531

PATIENT
  Sex: Female
  Weight: 60 kg

DRUGS (2)
  1. SPIRIVA RESPIMAT [Suspect]
     Active Substance: TIOTROPIUM BROMIDE
     Indication: Lung neoplasm malignant
     Dosage: 2 PUFFS IN A ROW, ONCE A DAY
     Route: 055
     Dates: start: 20240108
  2. SPIRIVA RESPIMAT [Suspect]
     Active Substance: TIOTROPIUM BROMIDE

REACTIONS (6)
  - Dyspnoea [Unknown]
  - Oxygen saturation decreased [Unknown]
  - Asthenia [Unknown]
  - Lung neoplasm malignant [Unknown]
  - Lung disorder [Unknown]
  - Intentional product use issue [Unknown]
